FAERS Safety Report 4659499-8 (Version None)
Quarter: 2005Q2

REPORT INFORMATION
  Report Type: 
  Country: None (occurrence: None)
  Receive Date: 20050511
  Receipt Date: 20050425
  Transmission Date: 20051028
  Serious: Yes (Death)
  Sender: FDA-Public Use
  Company Number: 2005-DE-01585GD

PATIENT

DRUGS (8)
  1. MORPHINE [Suspect]
     Indication: POST PROCEDURAL PAIN
     Dosage: SEE IMAGE
  2. FENTANYL [Suspect]
     Indication: GENERAL ANAESTHESIA
     Dosage: 7-15 MCG/KG
  3. HEPARIN [Suspect]
     Indication: THROMBOSIS PROPHYLAXIS
     Dosage: SEE IMAGE
  4. ACETAMINOPHEN [Concomitant]
  5. MIDAZOLAM HCL [Concomitant]
  6. PROPOFOL [Concomitant]
  7. ROCURONIUM (ROCURONIUM) [Concomitant]
  8. AMINOCAPROIC ACID (AMINOCAPROIC ACID) [Concomitant]

REACTIONS (2)
  - CEREBROVASCULAR ACCIDENT [None]
  - POST PROCEDURAL COMPLICATION [None]
